FAERS Safety Report 7967701-X (Version None)
Quarter: 2011Q4

REPORT INFORMATION
  Report Type: 
  Country: None (occurrence: None)
  Receive Date: 20111207
  Receipt Date: 20111124
  Transmission Date: 20120403
  Serious: Yes (Death)
  Sender: FDA-Public Use
  Company Number: 1000024681

PATIENT
  Age: 80 Year
  Sex: Female

DRUGS (5)
  1. ZOLPIDEM TARTRATE [Suspect]
     Dosage: 5 MG (5 MG, 1 IN 1 D), ORAL
     Route: 048
     Dates: start: 20110301
  2. LENDORM [Suspect]
     Dosage: 0.25 MG (0.25 MG, 1 IN 1 D), ORAL
     Route: 048
     Dates: start: 20070701
  3. MEMANTINE (IMEMANTINE HYDROCHLORIDE) [Suspect]
     Indication: DEMENTIA ALZHEIMER'S TYPE
     Dosage: 5;10;15 MG (510;15 MG, 1 IN 1 D), ORAL
     Route: 048
     Dates: start: 20110922, end: 20110930
  4. MEMANTINE (IMEMANTINE HYDROCHLORIDE) [Suspect]
     Indication: DEMENTIA ALZHEIMER'S TYPE
     Dosage: 5;10;15 MG (510;15 MG, 1 IN 1 D), ORAL
     Route: 048
     Dates: start: 20111001, end: 20111004
  5. MEMANTINE (IMEMANTINE HYDROCHLORIDE) [Suspect]
     Indication: DEMENTIA ALZHEIMER'S TYPE
     Dosage: 5;10;15 MG (510;15 MG, 1 IN 1 D), ORAL
     Route: 048
     Dates: start: 20110829, end: 20110921

REACTIONS (2)
  - DIZZINESS [None]
  - FALL [None]
